FAERS Safety Report 10972404 (Version 2)
Quarter: 2015Q2

REPORT INFORMATION
  Report Type: Spontaneous
  Country: US (occurrence: US)
  Receive Date: 20150331
  Receipt Date: 20150525
  Transmission Date: 20150821
  Serious: Yes (Hospitalization)
  Sender: FDA-Public Use
  Company Number: US-JNJFOC-20131014077

PATIENT
  Sex: Female
  Weight: 58.97 kg

DRUGS (5)
  1. BENZTROPINE [Concomitant]
     Active Substance: BENZTROPINE
     Indication: RESTLESS LEGS SYNDROME
     Route: 048
     Dates: start: 2011, end: 2012
  2. LYRICA [Concomitant]
     Active Substance: PREGABALIN
     Indication: SICKLE CELL ANAEMIA
     Dosage: EVERY 6 TO 8 HOURS
     Route: 048
  3. RISPERDAL [Suspect]
     Active Substance: RISPERIDONE
     Indication: BIPOLAR DISORDER
     Route: 048
     Dates: start: 201008, end: 201008
  4. RISPERIDONE. [Suspect]
     Active Substance: RISPERIDONE
     Indication: BIPOLAR DISORDER
     Route: 048
     Dates: start: 201008, end: 201303
  5. CELEXA [Concomitant]
     Active Substance: CITALOPRAM HYDROBROMIDE
     Indication: DEPRESSION
     Route: 048
     Dates: start: 2010, end: 2013

REACTIONS (1)
  - Condition aggravated [Unknown]
